FAERS Safety Report 5277751-2 (Version None)
Quarter: 2007Q1

REPORT INFORMATION
  Report Type: 
  Country: None (occurrence: None)
  Receive Date: 20070321
  Receipt Date: 20070312
  Transmission Date: 20070707
  Serious: Yes (Other)
  Sender: FDA-Public Use
  Company Number: 238170

PATIENT
  Age: 13 Year
  Sex: Male
  Weight: 18.5 kg

DRUGS (2)
  1. NUTROPIN AQ [Suspect]
     Indication: GROWTH HORMONE DEFICIENCY
     Dosage: 2.2 MG, 7/WEEK, UNK
     Dates: start: 20050922
  2. SYNTHROID [Concomitant]

REACTIONS (1)
  - HYPOTHYROIDISM [None]
